FAERS Safety Report 9714057 (Version 1)
Quarter: 2013Q4

REPORT INFORMATION
  Report Type: Spontaneous
  Country: US (occurrence: US)
  Receive Date: 20131126
  Receipt Date: 20131126
  Transmission Date: 20140711
  Serious: No
  Sender: FDA-Public Use
  Company Number: US-GILEAD-2008-0018783

PATIENT
  Sex: Female
  Weight: 108.86 kg

DRUGS (10)
  1. LETAIRIS [Suspect]
     Indication: PULMONARY ARTERIAL HYPERTENSION
     Route: 048
     Dates: start: 20070901
  2. LASIX [Concomitant]
  3. LEVOXYL [Concomitant]
  4. PLAQUENIL [Concomitant]
  5. JANUMET [Concomitant]
  6. METFORMIN [Concomitant]
  7. MOBIC [Concomitant]
  8. TYLENOL [Concomitant]
  9. FERROUS SULFATE [Concomitant]
  10. POTASSIUM CHLORIDE [Concomitant]

REACTIONS (1)
  - Nasal congestion [None]
